FAERS Safety Report 6238666-6 (Version None)
Quarter: 2009Q2

REPORT INFORMATION
  Report Type: 
  Country: None (occurrence: None)
  Receive Date: 20090622
  Receipt Date: 20090612
  Transmission Date: 20091009
  Serious: Yes (Hospitalization)
  Sender: FDA-Public Use
  Company Number: NP-ABBOTT-09P-113-0575930-00

PATIENT
  Age: 53 Year
  Sex: Female

DRUGS (13)
  1. WARFARIN SODIUM [Suspect]
     Indication: DILATATION VENTRICULAR
  2. WARFARIN SODIUM [Interacting]
     Indication: HYPOKINESIA
     Dosage: 1 MG TITRATED TO 2 MG
  3. TAMOXIFEN CITRATE [Interacting]
     Indication: PROPHYLACTIC CHEMOTHERAPY
  4. OMEPRAZOLE [Concomitant]
     Indication: DRUG USE FOR UNKNOWN INDICATION
  5. DIGOXIN [Concomitant]
     Indication: DRUG USE FOR UNKNOWN INDICATION
  6. CARVEDILOL [Concomitant]
     Indication: DRUG USE FOR UNKNOWN INDICATION
  7. LOSARTAN POTASSIUM [Concomitant]
     Indication: DRUG USE FOR UNKNOWN INDICATION
  8. FUROSEMIDE W/SPIRONOLACTONE [Concomitant]
     Indication: DRUG USE FOR UNKNOWN INDICATION
     Dosage: 20/50 MG ONCE DAILY
  9. FRUSEMIDE [Concomitant]
     Indication: DRUG USE FOR UNKNOWN INDICATION
  10. FRUSEMIDE [Concomitant]
  11. METOCLOPRAMIDE [Concomitant]
     Indication: DRUG USE FOR UNKNOWN INDICATION
  12. ALPHACALCIDOL [Concomitant]
     Indication: DRUG USE FOR UNKNOWN INDICATION
  13. VITAMIN B COMPLEX CAP [Concomitant]
     Indication: DRUG USE FOR UNKNOWN INDICATION

REACTIONS (2)
  - CARDIAC DISORDER [None]
  - DRUG INTERACTION [None]
